FAERS Safety Report 5334637-2 (Version None)
Quarter: 2007Q2

REPORT INFORMATION
  Report Type: 
  Country: None (occurrence: None)
  Receive Date: 20070525
  Receipt Date: 20070523
  Transmission Date: 20071010
  Serious: Yes (Other)
  Sender: FDA-Public Use
  Company Number: A0652743A

PATIENT
  Age: 83 Year
  Sex: Female

DRUGS (3)
  1. AVANDIA [Suspect]
     Indication: DRUG USE FOR UNKNOWN INDICATION
     Dosage: 4MG TWICE PER DAY
  2. METFORMIN HCL [Concomitant]
  3. UNSPECIFIED MEDICATIONS [Concomitant]

REACTIONS (2)
  - CARDIOMEGALY [None]
  - CEREBROVASCULAR ACCIDENT [None]
